FAERS Safety Report 6656366-5 (Version None)
Quarter: 2010Q1

REPORT INFORMATION
  Report Type: 
  Country: None (occurrence: None)
  Receive Date: 20100329
  Receipt Date: 20100320
  Transmission Date: 20100710
  Serious: Yes (Hospitalization)
  Sender: FDA-Public Use
  Company Number: A0851399A

PATIENT
  Sex: Female

DRUGS (2)
  1. ARZERRA [Suspect]
     Dosage: 300MG UNKNOWN
     Route: 042
     Dates: start: 20100301
  2. NO CONCURRENT MEDICATION [Concomitant]

REACTIONS (1)
  - TRANSAMINASES INCREASED [None]
